FAERS Safety Report 14820991 (Version 1)
Quarter: 2018Q2

REPORT INFORMATION
  Report Type: Spontaneous
  Country: US (occurrence: US)
  Receive Date: 20180427
  Receipt Date: 20180427
  Transmission Date: 20180711
  Serious: Yes (Hospitalization, Other)
  Sender: FDA-Public Use
  Company Number: US-BIOVITRUM-2018US0432

PATIENT
  Age: 30 Year
  Sex: Female

DRUGS (4)
  1. CELECOXIB. [Concomitant]
     Active Substance: CELECOXIB
  2. ANAKINRA [Suspect]
     Active Substance: ANAKINRA
     Indication: STILL^S DISEASE
  3. CHOLESTYRAMINE. [Concomitant]
     Active Substance: CHOLESTYRAMINE
  4. LEFLUNOMIDE. [Concomitant]
     Active Substance: LEFLUNOMIDE

REACTIONS (3)
  - Breech presentation [Recovered/Resolved]
  - Oligohydramnios [Recovered/Resolved]
  - Gestational hypertension [Unknown]
